FAERS Safety Report 9620188 (Version 4)
Quarter: 2014Q1

REPORT INFORMATION
  Report Type: Spontaneous
  Country: JP (occurrence: JP)
  Receive Date: 20131014
  Receipt Date: 20140306
  Transmission Date: 20141002
  Serious: Yes (Hospitalization)
  Sender: FDA-Public Use
  Company Number: JP-ABBVIE-13P-087-1132486-00

PATIENT
  Age: 25 Year
  Sex: Male
  Weight: 52.7 kg

DRUGS (7)
  1. HUMIRA [Suspect]
     Indication: CROHN^S DISEASE
     Route: 058
     Dates: start: 20130418, end: 20130418
  2. HUMIRA [Suspect]
  3. HUMIRA [Suspect]
     Dates: end: 20130806
  4. MESALAZINE [Concomitant]
     Indication: CROHN^S DISEASE
     Route: 048
     Dates: start: 20130121, end: 20130513
  5. MESALAZINE [Concomitant]
     Route: 048
     Dates: start: 20130620
  6. PARENTERAL NUTRITION [Concomitant]
     Indication: CROHN^S DISEASE
     Route: 048
     Dates: start: 20130121
  7. SODIUM FERROUS CITRATE [Concomitant]
     Indication: ANAEMIA
     Dates: start: 20130530

REACTIONS (1)
  - Vasculitis [Recovering/Resolving]
